FAERS Safety Report 8161475-8 (Version None)
Quarter: 2012Q1

REPORT INFORMATION
  Report Type: 
  Country: None (occurrence: None)
  Receive Date: 20120224
  Receipt Date: 20111014
  Transmission Date: 20120608
  Serious: No
  Sender: FDA-Public Use
  Company Number: US-MYLANLABS-2011S1019211

PATIENT
  Age: 58 Year
  Sex: Male
  Weight: 83.92 kg

DRUGS (4)
  1. ALPRAZOLAM [Suspect]
     Indication: INSOMNIA
     Route: 048
     Dates: start: 20110831
  2. ALPRAZOLAM [Suspect]
     Route: 048
  3. CRESTOR [Concomitant]
     Indication: BLOOD CHOLESTEROL INCREASED
  4. ALPRAZOLAM [Suspect]
     Route: 048
     Dates: start: 20110901

REACTIONS (3)
  - INSOMNIA [None]
  - INCORRECT DOSE ADMINISTERED [None]
  - DRUG INEFFECTIVE FOR UNAPPROVED INDICATION [None]
